FAERS Safety Report 14437065 (Version 2)
Quarter: 2018Q1

REPORT INFORMATION
  Report Type: Report from Study
  Country: RU (occurrence: RU)
  Receive Date: 20180125
  Receipt Date: 20180207
  Transmission Date: 20180509
  Serious: Yes (Other)
  Sender: FDA-Public Use
  Company Number: RU-ROCHE-2058135

PATIENT
  Age: 52 Year
  Sex: Female
  Weight: 65 kg

DRUGS (19)
  1. METOPROLOL SUCCINATE. [Concomitant]
     Active Substance: METOPROLOL SUCCINATE
     Route: 048
     Dates: start: 20170320, end: 20171130
  2. LYSOZYME [Concomitant]
     Active Substance: LYSOZYME
     Indication: RESPIRATORY TRACT INFECTION
     Route: 048
     Dates: start: 20171106, end: 20171110
  3. VEMURAFENIB. [Suspect]
     Active Substance: VEMURAFENIB
     Indication: MALIGNANT MELANOMA
     Dosage: TOTAL NUMBER OF TABLETS OF LAST VEMURAFENIB ADMINISTERED PRIOR TO SAE ONSET: 2?DATE OF MOST RECENT D
     Route: 048
     Dates: start: 20171013
  4. IBEROGAST [Concomitant]
     Active Substance: HERBALS
     Route: 048
     Dates: start: 20171010, end: 20171215
  5. LEVAMLODIPINE [Concomitant]
     Active Substance: LEVAMLODIPINE
     Route: 048
     Dates: start: 20171201
  6. XYLOMETAZOLINE [Concomitant]
     Active Substance: XYLOMETAZOLINE
     Indication: RESPIRATORY TRACT INFECTION
     Route: 061
     Dates: start: 20171106, end: 20171110
  7. CHLOROPYRAMINE [Concomitant]
     Active Substance: CHLOROPYRAMINE
     Indication: RASH
     Route: 048
     Dates: start: 20171029, end: 20171103
  8. LOSARTAN. [Concomitant]
     Active Substance: LOSARTAN
     Route: 048
     Dates: start: 20170320, end: 20171130
  9. METOPROLOL SUCCINATE. [Concomitant]
     Active Substance: METOPROLOL SUCCINATE
     Route: 048
     Dates: start: 20171201
  10. BLINDED ATEZOLIZUMAB [Suspect]
     Active Substance: ATEZOLIZUMAB
     Indication: MALIGNANT MELANOMA
     Dosage: TOTAL VOLUME OF LAST BLINDED ATEZOLIZUMAB: 250 ML?DATE OF MOST RECENT DOSE OF BLINDED ATEZOLIZUMAB P
     Route: 042
     Dates: start: 20171110
  11. DEXAMETHASONE SODIUM METASULFOBENZOATE/NEOMYCIN SULFATE/POLYMYXIN B SU [Concomitant]
     Indication: RESPIRATORY TRACT INFECTION
     Route: 061
     Dates: start: 20171106, end: 20171110
  12. PYRIDOXINE [Concomitant]
     Active Substance: PYRIDOXINE
     Indication: RESPIRATORY TRACT INFECTION
     Route: 048
     Dates: start: 20171106, end: 20171110
  13. COBIMETINIB. [Suspect]
     Active Substance: COBIMETINIB
     Indication: MALIGNANT MELANOMA
     Dosage: DOSE OF LAST COBIMETINIB ADMINISTERED PRIOR TO SAE ONSET: 40 MG ON 10/DEC/2017 ?DOSE OF LAST COBIMET
     Route: 048
     Dates: start: 20171013
  14. PANTOPRAZOLE [Concomitant]
     Active Substance: PANTOPRAZOLE
     Route: 048
     Dates: start: 20171006
  15. URSODEOXYCHOLIC ACID [Concomitant]
     Active Substance: URSODIOL
     Route: 048
     Dates: start: 20171006
  16. LOPERAMIDE [Concomitant]
     Active Substance: LOPERAMIDE
     Route: 048
     Dates: start: 20171022, end: 20171023
  17. CETIRIZINE [Concomitant]
     Active Substance: CETIRIZINE HYDROCHLORIDE
     Indication: RASH
     Route: 048
     Dates: start: 20171023, end: 20171025
  18. LOSARTAN. [Concomitant]
     Active Substance: LOSARTAN
     Route: 048
     Dates: start: 20171101
  19. LOPERAMIDE [Concomitant]
     Active Substance: LOPERAMIDE
     Indication: DIARRHOEA
     Route: 048
     Dates: start: 20171130, end: 20171130

REACTIONS (2)
  - Chorioretinopathy [Recovered/Resolved]
  - Chorioretinopathy [Not Recovered/Not Resolved]

NARRATIVE: CASE EVENT DATE: 20171023
